FAERS Safety Report 25676285 (Version 2)
Quarter: 2025Q3

REPORT INFORMATION
  Report Type: Report from Study
  Country: US (occurrence: US)
  Receive Date: 20250813
  Receipt Date: 20250918
  Transmission Date: 20251020
  Serious: Yes (Other)
  Sender: MALLINCKRODT
  Company Number: US-MALLINCKRODT-MNK202504922

PATIENT
  Sex: Female

DRUGS (4)
  1. CORTICOTROPIN [Suspect]
     Active Substance: CORTICOTROPIN
     Indication: Optic neuritis
  2. CORTICOTROPIN [Suspect]
     Active Substance: CORTICOTROPIN
  3. UBRELVY [Concomitant]
     Active Substance: UBROGEPANT
  4. CELLCEPT [Concomitant]
     Active Substance: MYCOPHENOLATE MOFETIL

REACTIONS (6)
  - Optic neuritis [Unknown]
  - Disease progression [Unknown]
  - Nausea [Unknown]
  - Migraine [Unknown]
  - Visual impairment [Unknown]
  - Therapy non-responder [Unknown]
